FAERS Safety Report 6667512-1 (Version None)
Quarter: 2010Q2

REPORT INFORMATION
  Report Type: 
  Country: None (occurrence: None)
  Receive Date: 20100405
  Receipt Date: 20100323
  Transmission Date: 20101027
  Serious: Yes (Hospitalization)
  Sender: FDA-Public Use
  Company Number: JP-GENENTECH-290158

PATIENT
  Sex: Male

DRUGS (5)
  1. RANIBIZUMAB [Suspect]
     Indication: MACULAR DEGENERATION
     Dosage: 0.05 ML, UNK
     Route: 031
     Dates: start: 20090624
  2. ADONA [Concomitant]
     Indication: DRUG USE FOR UNKNOWN INDICATION
  3. NAFTOPIDIL [Concomitant]
     Indication: DRUG USE FOR UNKNOWN INDICATION
  4. FAMOTIDINE [Concomitant]
     Indication: DRUG USE FOR UNKNOWN INDICATION
  5. BEPRIDIL [Concomitant]
     Indication: DRUG USE FOR UNKNOWN INDICATION

REACTIONS (2)
  - VENTRICULAR FIBRILLATION [None]
  - VITREOUS HAEMORRHAGE [None]
